FAERS Safety Report 8223261-X (Version None)
Quarter: 2012Q1

REPORT INFORMATION
  Report Type: 
  Country: None (occurrence: None)
  Receive Date: 20120321
  Receipt Date: 20120314
  Transmission Date: 20120608
  Serious: Yes (Death)
  Sender: FDA-Public Use
  Company Number: US-ROCHE-1011214

PATIENT
  Sex: Female

DRUGS (3)
  1. LISINOPRIL [Concomitant]
  2. HERCEPTIN [Suspect]
     Dosage: MAINTAINANCE DOSE, 30 MINS QW FROM DAY8
     Route: 042
  3. HERCEPTIN [Suspect]
     Indication: ENDOMETRIAL CANCER RECURRENT
     Dosage: OVER 90 MINS ON DAY 1 (LOADING DOSE)
     Route: 042
     Dates: start: 20001207

REACTIONS (1)
  - MYOCARDIAL INFARCTION [None]
